FAERS Safety Report 8386879-X (Version None)
Quarter: 2012Q2

REPORT INFORMATION
  Report Type: 
  Country: None (occurrence: None)
  Receive Date: 20120525
  Receipt Date: 20120517
  Transmission Date: 20120825
  Serious: Yes (Other)
  Sender: FDA-Public Use
  Company Number: US-US-EMD SERONO, INC.-7032956

PATIENT
  Sex: Male

DRUGS (3)
  1. REBIF [Suspect]
     Indication: MULTIPLE SCLEROSIS
     Route: 058
     Dates: start: 20101022
  2. STEROIDS [Concomitant]
     Indication: COLOUR BLINDNESS ACQUIRED
  3. STEROIDS [Concomitant]
     Indication: VISUAL ACUITY REDUCED

REACTIONS (6)
  - NUCLEAR MAGNETIC RESONANCE IMAGING ABNORMAL [None]
  - INJECTION SITE ERYTHEMA [None]
  - BALANCE DISORDER [None]
  - AUTOIMMUNE DISORDER [None]
  - INJECTION SITE PAIN [None]
  - INJECTION SITE NODULE [None]
